FAERS Safety Report 9360884 (Version 2)
Quarter: 2013Q2

REPORT INFORMATION
  Report Type: Spontaneous
  Country: FR (occurrence: FR)
  Receive Date: 20130621
  Receipt Date: 20130626
  Transmission Date: 20140414
  Serious: Yes (Hospitalization, Other)
  Sender: FDA-Public Use
  Company Number: FR-PFIZER INC-2013183104

PATIENT
  Age: 8 Month
  Sex: Male

DRUGS (1)
  1. ADVIL [Suspect]
     Dosage: 1 DF, 3X/DAY
     Route: 048
     Dates: start: 20130312, end: 20130319

REACTIONS (4)
  - Arthritis [Recovering/Resolving]
  - Bronchiolitis [Unknown]
  - Streptococcal infection [Unknown]
  - Mass [Unknown]
